FAERS Safety Report 18917476 (Version 4)
Quarter: 2021Q2

REPORT INFORMATION
  Report Type: Report from Study
  Country: PL (occurrence: PL)
  Receive Date: 20210219
  Receipt Date: 20210422
  Transmission Date: 20210717
  Serious: Yes (Other)
  Sender: FDA-Public Use
  Company Number: PL-AMERICAN REGENT INC-2021000383

PATIENT
  Age: 73 Year
  Sex: Male
  Weight: 109 kg

DRUGS (11)
  1. CLEXANE [Concomitant]
     Active Substance: ENOXAPARIN SODIUM
     Indication: ATRIAL FIBRILLATION
     Dosage: 100MG/1ML, QD
     Route: 058
     Dates: start: 202009, end: 20210211
  2. GOPTEN [Concomitant]
     Active Substance: TRANDOLAPRIL
     Indication: CARDIAC FAILURE
     Dosage: 0.5 MILLIGRAM, QD
     Route: 048
     Dates: start: 202009
  3. PANTOPRAZOL [Concomitant]
     Active Substance: PANTOPRAZOLE SODIUM
     Indication: CHRONIC GASTRITIS
     Dosage: 20 MILLIGRAM, QD
     Route: 048
     Dates: start: 202002
  4. VIVACOR                            /00802602/ [Concomitant]
     Indication: CARDIAC FAILURE
     Dosage: 6.25 MILLIGRAM, BID
     Route: 048
     Dates: start: 202002
  5. FERRIC CARBOXYMALTOSE INJECTION [Suspect]
     Active Substance: FERRIC CARBOXYMALTOSE
     Indication: CARDIAC FAILURE CHRONIC
     Dosage: 15 MILLILITER, SINGLE (KIT 218826)
     Route: 042
     Dates: start: 20210204, end: 20210204
  6. ATORIS [Concomitant]
     Active Substance: ATORVASTATIN CALCIUM
     Indication: HYPERCHOLESTEROLAEMIA
     Dosage: 20 MILLIGRAM, QD
     Route: 048
     Dates: start: 202002
  7. GENSULIN [Concomitant]
     Indication: DIABETES MELLITUS
     Dosage: 28 UNITS, BID
     Route: 058
     Dates: start: 202002
  8. ACARD [Concomitant]
     Indication: MYOCARDIAL ISCHAEMIA
     Dosage: 75 MILLIGRAM, QD
     Route: 048
     Dates: start: 202002, end: 20210211
  9. FUROSEMIDUM                        /00032601/ [Concomitant]
     Active Substance: FUROSEMIDE SODIUM
     Indication: CARDIAC FAILURE
     Dosage: 80 MILLIGRAM, BID
     Route: 048
     Dates: start: 202002
  10. FERRIC CARBOXYMALTOSE INJECTION [Suspect]
     Active Substance: FERRIC CARBOXYMALTOSE
     Indication: IRON DEFICIENCY
     Dosage: 15 MILLILITER, SINGLE (KIT 115328)
     Route: 042
     Dates: start: 20210211, end: 20210211
  11. MILURIT [Concomitant]
     Active Substance: ALLOPURINOL
     Indication: HYPERURICAEMIA
     Dosage: 100 MILLIGRAM, BID
     Route: 048
     Dates: start: 202002

REACTIONS (3)
  - Dizziness [Recovered/Resolved]
  - Asthenia [Recovered/Resolved]
  - Nausea [Recovered/Resolved]

NARRATIVE: CASE EVENT DATE: 20210204
